FAERS Safety Report 7348867-1 (Version None)
Quarter: 2011Q1

REPORT INFORMATION
  Report Type: 
  Country: None (occurrence: None)
  Receive Date: 20110225
  Receipt Date: 20101216
  Transmission Date: 20110831
  Serious: Yes (Hospitalization)
  Sender: FDA-Public Use
  Company Number: 320263

PATIENT
  Age: 56 Year
  Sex: Female
  Weight: 140.6 kg

DRUGS (11)
  1. MILNACIPRAN HCL (MILNACIPRAN HYDROCHLORIDE) [Concomitant]
  2. NEXIUM [Concomitant]
  3. METHYLDOPA [Concomitant]
  4. POTASSIUM (POTASSIUM) [Concomitant]
  5. PRAZOLAM (ALPRAZOLAM) [Concomitant]
  6. VICTOZA [Suspect]
     Indication: TYPE 2 DIABETES MELLITUS
     Dosage: 0.6 MG, QD, SUBCUTANEOUS, 1.2 MG, QD, SUBCUTANEOUS
     Route: 058
     Dates: start: 20101122
  7. VICTOZA [Suspect]
     Indication: TYPE 2 DIABETES MELLITUS
     Dosage: 0.6 MG, QD, SUBCUTANEOUS, 1.2 MG, QD, SUBCUTANEOUS
     Route: 058
     Dates: end: 20101213
  8. LISINOPRIL [Concomitant]
  9. FUROSEMIDE [Concomitant]
  10. ALDACTONE [Concomitant]
  11. LEVOTHYROID (LEVOTHYROXINE SODIUM) [Concomitant]

REACTIONS (1)
  - PANCREATITIS ACUTE [None]
